FAERS Safety Report 8735490 (Version 2)
Quarter: 2012Q4

REPORT INFORMATION
  Report Type: 
  Country: US (occurrence: US)
  Receive Date: 20120822
  Receipt Date: 20121011
  Transmission Date: 20130627
  Serious: No
  Sender: FDA-Public Use
  Company Number: PHEH2012US016187

PATIENT
  Sex: Male

DRUGS (1)
  1. FOCALIN [Suspect]
     Dosage: 10 mg, UNK

REACTIONS (1)
  - Visual impairment [Recovered/Resolved]
